FAERS Safety Report 9603033 (Version 1)
Quarter: 2013Q4

REPORT INFORMATION
  Report Type: Report from Study
  Country: DE (occurrence: DE)
  Receive Date: 20131007
  Receipt Date: 20131007
  Transmission Date: 20140711
  Serious: Yes (Other)
  Sender: FDA-Public Use
  Company Number: DE-INCYTE CORPORATION-2013IN002286

PATIENT
  Age: 83 Year
  Sex: Male
  Weight: 63.6 kg

DRUGS (14)
  1. INCB018424 [Suspect]
     Indication: MYELOFIBROSIS
     Dosage: 5 MG, 2 DF PER DAY
     Route: 048
     Dates: start: 20130513, end: 20130617
  2. INCB018424 [Suspect]
     Dosage: 5 MG, 3 DF PER DAY
     Route: 048
     Dates: start: 20130617, end: 20130701
  3. INCB018424 [Suspect]
     Dosage: 5 MG, 2 DF PER DAY
     Route: 048
     Dates: start: 20130701, end: 20130711
  4. INCB018424 [Suspect]
     Dosage: 5 MG, 2 DF PER DAY
     Route: 048
     Dates: start: 20130729
  5. ERYTHROPOIETIN [Concomitant]
  6. BISOPROLOL [Concomitant]
     Dosage: UNK
     Dates: start: 20081222
  7. ISCOVER [Concomitant]
     Dosage: UNK
     Dates: start: 20081222
  8. RANITIC [Concomitant]
     Dosage: UNK
     Dates: start: 20081222
  9. ALLOPURINOL [Concomitant]
     Dosage: UNK
     Dates: start: 20090523
  10. TORASEMIDE [Concomitant]
     Dosage: UNK
     Dates: start: 20130227
  11. HYDROXYCARBAMIDE [Concomitant]
     Dosage: UNK
     Dates: start: 20130422, end: 20130801
  12. IBUPROFEN [Concomitant]
     Dosage: UNK
     Dates: start: 20130527
  13. LITALIR [Concomitant]
     Dosage: UNK
     Dates: start: 20130801
  14. MADOPAR [Concomitant]
     Dosage: UNK
     Dates: start: 20130805

REACTIONS (6)
  - Iron overload [Not Recovered/Not Resolved]
  - Petechiae [Not Recovered/Not Resolved]
  - Anaemia [Not Recovered/Not Resolved]
  - Thrombocytopenia [Not Recovered/Not Resolved]
  - Dyspnoea exertional [Not Recovered/Not Resolved]
  - Fatigue [Recovered/Resolved]
